FAERS Safety Report 25790517 (Version 1)
Quarter: 2025Q3

REPORT INFORMATION
  Report Type: Spontaneous
  Country: US (occurrence: US)
  Receive Date: 20250911
  Receipt Date: 20250911
  Transmission Date: 20251021
  Serious: No
  Sender: LUPIN
  Company Number: US-LUPIN PHARMACEUTICALS INC.-2025-08122

PATIENT
  Sex: Female
  Weight: 40.816 kg

DRUGS (1)
  1. DOXYCYCLINE [Suspect]
     Active Substance: DOXYCYCLINE
     Indication: Atypical pneumonia
     Dosage: 9 MILLILITER, BID
     Dates: start: 20250827

REACTIONS (2)
  - Product storage error [Unknown]
  - No adverse event [Unknown]
